FAERS Safety Report 7320812-4 (Version None)
Quarter: 2011Q1

REPORT INFORMATION
  Report Type: 
  Country: None (occurrence: None)
  Receive Date: 20110228
  Receipt Date: 20110214
  Transmission Date: 20110831
  Serious: Yes (Other)
  Sender: FDA-Public Use
  Company Number: US-ROCHE-759456

PATIENT

DRUGS (3)
  1. BEVACIZUMAB [Suspect]
     Indication: METASTATIC RENAL CELL CARCINOMA
     Dosage: ON DAYS 1 AND 15 OF EACH 28-DAY CYCLE.
     Route: 042
  2. PROLEUKIN [Suspect]
     Indication: METASTATIC RENAL CELL CARCINOMA
     Dosage: LOADING DOSE OF 250000 UNITS/ KG/DAY FOR FIRST WEEK FROM MONDAY TO FRIDAY.
     Route: 058
  3. PROLEUKIN [Suspect]
     Dosage: DOSE: 125000 UNITS/ KG/DAY FROM MONDAY TO FRIDAY FOR THE REMAINING 5 WEEKS FOLLOWED BY A 2 WEEK REST
     Route: 058

REACTIONS (8)
  - PRURITUS [None]
  - MYOCARDIAL INFARCTION [None]
  - ANAEMIA [None]
  - CHEST PAIN [None]
  - CARDIAC FAILURE CONGESTIVE [None]
  - HYPERTENSION [None]
  - NEUTROPENIA [None]
  - MUSCULOSKELETAL PAIN [None]
